FAERS Safety Report 14266876 (Version 1)
Quarter: 2017Q4

REPORT INFORMATION
  Report Type: Spontaneous
  Country: IT (occurrence: IT)
  Receive Date: 20171211
  Receipt Date: 20171211
  Transmission Date: 20180321
  Serious: Yes (Hospitalization)
  Sender: FDA-Public Use
  Company Number: IT-CONCORDIA PHARMACEUTICALS INC.-E2B_00008722

PATIENT
  Age: 80 Year
  Sex: Female

DRUGS (8)
  1. DIBASE 10.000 U.I./ML GOCCE ORALI, SOLUZIONE [Concomitant]
  2. TILDIEM 120 MG COMPRESSE A RILASCIO PROLUNGATO [Concomitant]
  3. LANOXIN [Suspect]
     Active Substance: DIGOXIN
     Indication: CARDIAC FAILURE
     Route: 048
  4. COUMADIN 5 MG COMPRESSE [Concomitant]
  5. LEDERFOLIN 7,5 MG COMPRESSE [Concomitant]
  6. LASIX 25 MG COMPRESSE [Concomitant]
  7. LUVION 50 MG COMPRESSE [Concomitant]
  8. DELTACORTENE 5 MG COMPRESSE [Concomitant]

REACTIONS (6)
  - Vomiting [Unknown]
  - Toxicity to various agents [Unknown]
  - Atrial fibrillation [Unknown]
  - Asthenia [Unknown]
  - Bradycardia [Unknown]
  - Presyncope [Unknown]

NARRATIVE: CASE EVENT DATE: 20170801
